FAERS Safety Report 12721853 (Version 1)
Quarter: 2016Q3

REPORT INFORMATION
  Report Type: Spontaneous
  Country: DE (occurrence: DE)
  Receive Date: 20160907
  Receipt Date: 20160907
  Transmission Date: 20161109
  Serious: Yes (Other)
  Sender: FDA-Public Use
  Company Number: DE-TEVA-679507GER

PATIENT
  Sex: Female
  Weight: 48.8 kg

DRUGS (4)
  1. DIAZEPAM-RATIOPHARM 10 MG TABLETTEN [Suspect]
     Active Substance: DIAZEPAM
     Indication: SLEEP DISORDER
     Dosage: 10 MILLIGRAM DAILY;
     Route: 048
     Dates: start: 1978
  2. METOPROLOL. [Concomitant]
     Active Substance: METOPROLOL
     Dosage: 50 MILLIGRAM DAILY;
  3. DIAZEPAM-RATIOPHARM 10 MG TABLETTEN [Suspect]
     Active Substance: DIAZEPAM
     Indication: AGITATION
  4. VOLTAREN 75 MG [Concomitant]
     Indication: ARTHRALGIA
     Dosage: 150 MILLIGRAM DAILY;
     Route: 048

REACTIONS (4)
  - Heart rate increased [Not Recovered/Not Resolved]
  - Palpitations [Not Recovered/Not Resolved]
  - Product use issue [Unknown]
  - Tremor [Not Recovered/Not Resolved]

NARRATIVE: CASE EVENT DATE: 2011
